FAERS Safety Report 8201273-X (Version None)
Quarter: 2012Q1

REPORT INFORMATION
  Report Type: 
  Country: None (occurrence: None)
  Receive Date: 20120312
  Receipt Date: 20120306
  Transmission Date: 20120608
  Serious: Yes (Hospitalization, Other)
  Sender: FDA-Public Use
  Company Number: PHHY2012BR000845

PATIENT
  Sex: Female

DRUGS (9)
  1. ATENOLOL [Suspect]
     Indication: ANGINA PECTORIS
  2. PREDNISONE [Concomitant]
     Indication: SINUSITIS
     Dosage: UNK UKN, UNK
  3. SIMVASTATIN [Concomitant]
     Dosage: UNK UKN, UNK
  4. LORATADINE [Concomitant]
     Dosage: UNK UKN, UNK
  5. EXFORGE [Suspect]
     Indication: HYPERTENSION
     Dosage: 1 DF (160/5 MG), QD
     Dates: start: 20050101
  6. DILTIAZEM [Concomitant]
     Dosage: UNK UKN, UNK
  7. FLUTICASONE PROPIONATE/SALMETEROL [Concomitant]
     Indication: SINUSITIS
     Dosage: UNK UKN, UNK
     Dates: start: 19900101
  8. TICLOPIDINE HCL [Concomitant]
     Dosage: UNK UKN, UNK
  9. OMEPRAZOLE [Concomitant]
     Dosage: UNK UKN, UNK

REACTIONS (9)
  - ALLERGIC COUGH [None]
  - BRONCHOSPASM [None]
  - ISCHAEMIA [None]
  - SINUSITIS [None]
  - CONDITION AGGRAVATED [None]
  - CEREBROVASCULAR ACCIDENT [None]
  - COORDINATION ABNORMAL [None]
  - OEDEMA PERIPHERAL [None]
  - ASTHENIA [None]
